FAERS Safety Report 7652942-1 (Version None)
Quarter: 2011Q3

REPORT INFORMATION
  Report Type: 
  Country: None (occurrence: None)
  Receive Date: 20110802
  Receipt Date: 20110802
  Transmission Date: 20111222
  Serious: Yes (Life-Threatening, Hospitalization, Disabling)
  Sender: FDA-Public Use
  Company Number: None

PATIENT
  Age: 44 Year
  Sex: Male
  Weight: 79.3795 kg

DRUGS (2)
  1. LARIAM [Suspect]
     Indication: MALARIA
     Dosage: 250 MG WEEKLY ORAL
     Route: 048
     Dates: start: 20021101
  2. LARIAM [Suspect]
     Indication: MALARIA
     Dosage: 250 MG WEEKLY ORAL
     Route: 048
     Dates: start: 20030512

REACTIONS (1)
  - VESTIBULAR DISORDER [None]
